FAERS Safety Report 23965262 (Version 1)
Quarter: 2024Q2

REPORT INFORMATION
  Report Type: Spontaneous
  Country: US (occurrence: None)
  Receive Date: 20240611
  Receipt Date: 20240611
  Transmission Date: 20240716
  Serious: Yes (Hospitalization, Other)
  Sender: FDA-Public Use
  Company Number: None

PATIENT
  Age: 28 Year
  Sex: Male
  Weight: 90 kg

DRUGS (2)
  1. COCOA [Suspect]
     Active Substance: COCOA
     Indication: Feeling of relaxation
     Dates: start: 20240608, end: 20240608
  2. COCOA [Suspect]
     Active Substance: COCOA
     Indication: Substance use

REACTIONS (5)
  - Crying [None]
  - Fall [None]
  - Hypertension [None]
  - Screaming [None]
  - Product complaint [None]

NARRATIVE: CASE EVENT DATE: 20240608
